FAERS Safety Report 24790577 (Version 1)
Quarter: 2024Q4

REPORT INFORMATION
  Report Type: Spontaneous
  Country: IT (occurrence: IT)
  Receive Date: 20241230
  Receipt Date: 20241230
  Transmission Date: 20250115
  Serious: Yes (Death)
  Sender: MYLAN
  Company Number: IT-MYLANLABS-2024M1116027

PATIENT
  Age: 83 Year
  Sex: Female

DRUGS (3)
  1. XANAX [Suspect]
     Active Substance: ALPRAZOLAM
     Indication: Product used for unknown indication
     Dosage: UNK (UP TO ONE 100 DROPS OF XANAX IN A SINGLE DAY)
     Route: 048
  2. Tavor [Concomitant]
     Dosage: UNK
     Route: 065
  3. TRAZODONE HYDROCHLORIDE [Concomitant]
     Active Substance: TRAZODONE HYDROCHLORIDE
     Dosage: UNK
     Route: 065

REACTIONS (2)
  - Overdose [Fatal]
  - Prescription drug used without a prescription [Fatal]
